FAERS Safety Report 21084351 (Version 3)
Quarter: 2023Q4

REPORT INFORMATION
  Report Type: Report from Study
  Country: US (occurrence: US)
  Receive Date: 20220714
  Receipt Date: 20231211
  Transmission Date: 20240109
  Serious: Yes (Hospitalization)
  Sender: FDA-Public Use
  Company Number: US-JAZZ-2022-US-016657

PATIENT
  Sex: Male

DRUGS (4)
  1. EPIDIOLEX [Suspect]
     Active Substance: CANNABIDIOL
     Indication: Lennox-Gastaut syndrome
     Dosage: 3.3 MILLILITER
     Route: 048
     Dates: start: 20220316
  2. EPIDIOLEX [Suspect]
     Active Substance: CANNABIDIOL
     Indication: Status epilepticus
     Dosage: 1.8 MILLILITER, BID, VIA-G-TUBE
     Route: 048
     Dates: start: 202008
  3. EPIDIOLEX [Suspect]
     Active Substance: CANNABIDIOL
     Indication: Nephrolithiasis
     Dosage: 1.8 MILLILITER, BID  VIA-G-TUBE
     Route: 048
     Dates: start: 202008
  4. EPIDIOLEX [Suspect]
     Active Substance: CANNABIDIOL
     Indication: Epilepsy

REACTIONS (3)
  - Hospitalisation [Unknown]
  - Hospitalisation [Unknown]
  - Unevaluable event [Unknown]
